FAERS Safety Report 9815568 (Version 1)
Quarter: 2014Q1

REPORT INFORMATION
  Report Type: Spontaneous
  Country: TR (occurrence: TR)
  Receive Date: 20140114
  Receipt Date: 20140114
  Transmission Date: 20141002
  Serious: Yes (Other)
  Sender: FDA-Public Use
  Company Number: TR-JNJFOC-20140105973

PATIENT
  Age: 64 Year
  Sex: Female

DRUGS (7)
  1. TRAMADOL HYDROCHLORIDE [Suspect]
     Indication: PROCEDURAL PAIN
     Route: 065
  2. TRAMADOL HYDROCHLORIDE [Suspect]
     Indication: PROCEDURAL PAIN
     Route: 065
  3. MIRTAZAPINE [Interacting]
     Indication: INSOMNIA
     Route: 065
  4. ALPRAZOLAM [Suspect]
     Indication: INSOMNIA
     Route: 065
  5. BROMAZEPAM [Suspect]
     Indication: INSOMNIA
     Route: 065
  6. LORAZEPAM [Suspect]
     Indication: INSOMNIA
     Route: 065
  7. MIDAZOLAM [Suspect]
     Indication: INSOMNIA
     Route: 065

REACTIONS (3)
  - Status epilepticus [Unknown]
  - Drug interaction [Unknown]
  - Drug abuse [Unknown]
